FAERS Safety Report 8840434 (Version 3)
Quarter: 2012Q4

REPORT INFORMATION
  Report Type: 
  Country: JP (occurrence: JP)
  Receive Date: 20121015
  Receipt Date: 20121207
  Transmission Date: 20130627
  Serious: Yes (Other)
  Sender: FDA-Public Use
  Company Number: JP-PFIZER INC-2012250846

PATIENT
  Age: 8 Year
  Sex: Male
  Weight: 24.4 kg

DRUGS (2)
  1. ZITHROMAC [Suspect]
     Indication: COUGH
     Dosage: 10 mg/kg, 1x/day
     Route: 048
     Dates: start: 20120821, end: 20120823
  2. ZITHROMAC [Suspect]
     Indication: BRONCHITIS

REACTIONS (3)
  - Blood creatine phosphokinase increased [Recovered/Resolved]
  - Myositis [Recovered/Resolved]
  - Pyrexia [Unknown]
